FAERS Safety Report 19307967 (Version 1)
Quarter: 2021Q2

REPORT INFORMATION
  Report Type: Spontaneous
  Country: US (occurrence: US)
  Receive Date: 20210526
  Receipt Date: 20210526
  Transmission Date: 20210717
  Serious: No
  Sender: FDA-Public Use
  Company Number: None

PATIENT
  Age: 47 Year
  Sex: Female
  Weight: 56 kg

DRUGS (4)
  1. FERRLECIT [Suspect]
     Active Substance: SODIUM FERRIC GLUCONATE COMPLEX
     Indication: IRON DEFICIENCY ANAEMIA
     Dosage: ?          OTHER FREQUENCY:ONCE;?
     Route: 042
     Dates: start: 20201125, end: 20201202
  2. VENOFER [Concomitant]
     Active Substance: IRON SUCROSE
     Dates: start: 20190627, end: 20210508
  3. FERRIC GLUCONATE COMPLEX (FERRLECT) [Concomitant]
     Dates: start: 20201125, end: 20201202
  4. VENOFER [Suspect]
     Active Substance: IRON SUCROSE
     Indication: IRON DEFICIENCY ANAEMIA
     Dosage: ?          OTHER FREQUENCY:ONCE;?
     Route: 042
     Dates: start: 20190923, end: 20210508

REACTIONS (5)
  - Dyspnoea [None]
  - Arthralgia [None]
  - Urticaria [None]
  - Joint swelling [None]
  - Abdominal pain upper [None]

NARRATIVE: CASE EVENT DATE: 20210508
